FAERS Safety Report 7878432-9 (Version None)
Quarter: 2011Q4

REPORT INFORMATION
  Report Type: 
  Country: None (occurrence: None)
  Receive Date: 20111028
  Receipt Date: 20111019
  Transmission Date: 20120403
  Serious: Yes (Hospitalization, Other)
  Sender: FDA-Public Use
  Company Number: IMP_05441_2011

PATIENT
  Age: 75 Year
  Sex: Male
  Weight: 54 kg

DRUGS (4)
  1. ALMAGATE (ALMAGATE (ALUMINUM MAGNESIUM HYDROXIDE) [Suspect]
     Indication: NAUSEA
     Dosage: 1.5 G TID
  2. ALMAGATE (ALMAGATE (ALUMINUM MAGNESIUM HYDROXIDE) [Suspect]
     Indication: ABDOMINAL PAIN UPPER
     Dosage: 1.5 G TID
  3. DOXYCYCLINE [Suspect]
     Indication: SCRUB TYPHUS
     Dosage: 100 MG, BID
  4. RANITIDINE [Concomitant]

REACTIONS (21)
  - ESCHAR [None]
  - DRUG INTERACTION [None]
  - RASH MACULO-PAPULAR [None]
  - PLEURAL EFFUSION [None]
  - LYMPHADENOPATHY [None]
  - DEHYDRATION [None]
  - GAMMA-GLUTAMYLTRANSFERASE INCREASED [None]
  - BLOOD ALBUMIN DECREASED [None]
  - DUODENAL ULCER [None]
  - ASPARTATE AMINOTRANSFERASE INCREASED [None]
  - PLATELET COUNT DECREASED [None]
  - LACUNAR INFARCTION [None]
  - TREATMENT FAILURE [None]
  - PULMONARY OEDEMA [None]
  - ENCEPHALITIS [None]
  - CONJUNCTIVAL HYPERAEMIA [None]
  - HAEMOGLOBIN DECREASED [None]
  - ALANINE AMINOTRANSFERASE INCREASED [None]
  - BLOOD ALKALINE PHOSPHATASE INCREASED [None]
  - BLOOD SODIUM DECREASED [None]
  - GASTRIC ULCER [None]
